FAERS Safety Report 8964542 (Version 1)
Quarter: 2012Q4

REPORT INFORMATION
  Report Type: 
  Country: US (occurrence: US)
  Receive Date: 20121213
  Receipt Date: 20121213
  Transmission Date: 20130627
  Serious: Yes (Other)
  Sender: FDA-Public Use
  Company Number: PHHY2012US114633

PATIENT
  Age: 49 Year
  Sex: Male

DRUGS (2)
  1. SOMATROPIN [Suspect]
     Dosage: 0.58 mg, daily
     Route: 058
  2. TESTOSTERONE [Concomitant]

REACTIONS (1)
  - Malignant melanoma [Unknown]
